FAERS Safety Report 7943382-6 (Version None)
Quarter: 2011Q4

REPORT INFORMATION
  Report Type: 
  Country: None (occurrence: None)
  Receive Date: 20111128
  Receipt Date: 20111116
  Transmission Date: 20120403
  Serious: Yes (Hospitalization, Other)
  Sender: FDA-Public Use
  Company Number: US-BAYER-201022955NA

PATIENT
  Age: 48 Year
  Sex: Female
  Weight: 63 kg

DRUGS (4)
  1. YAZ [Suspect]
     Indication: MENOPAUSAL SYMPTOMS
     Dosage: UNK UNK, UNK
     Route: 048
     Dates: start: 20070901, end: 20090301
  2. LORCET-HD [Concomitant]
     Dosage: UNK UNK, PRN
     Dates: start: 20090201
  3. NSAID'S [Concomitant]
     Dosage: UNK
     Dates: start: 19780101
  4. ASCORBIC ACID [Concomitant]
     Dosage: UNK
     Dates: start: 19800101

REACTIONS (3)
  - DEEP VEIN THROMBOSIS [None]
  - THROMBOPHLEBITIS SUPERFICIAL [None]
  - PULMONARY EMBOLISM [None]
